FAERS Safety Report 18514206 (Version 2)
Quarter: 2020Q4

REPORT INFORMATION
  Report Type: Spontaneous
  Country: US (occurrence: US)
  Receive Date: 20201117
  Receipt Date: 20201126
  Transmission Date: 20210114
  Serious: No
  Sender: FDA-Public Use
  Company Number: US-JNJFOC-20201112299

PATIENT

DRUGS (1)
  1. IMODIUM A-D [Suspect]
     Active Substance: LOPERAMIDE HYDROCHLORIDE
     Indication: DIARRHOEA
     Dosage: EVERY OTHER DAY, SOMETIMES EVERY TWO DAYS
     Route: 048

REACTIONS (1)
  - Inappropriate schedule of product administration [Unknown]
